FAERS Safety Report 19744834 (Version 1)
Quarter: 2021Q3

REPORT INFORMATION
  Report Type: Spontaneous
  Country: CA (occurrence: CA)
  Receive Date: 20210825
  Receipt Date: 20210825
  Transmission Date: 20211014
  Serious: Yes (Hospitalization)
  Sender: FDA-Public Use
  Company Number: CA-TEVA-2021-CA-1944944

PATIENT
  Age: 17 Year
  Sex: Male
  Weight: 61 kg

DRUGS (1)
  1. DOXYCYCLINE. [Suspect]
     Active Substance: DOXYCYCLINE
     Indication: ACNE
     Dosage: 100 MILLIGRAM DAILY;
     Route: 048

REACTIONS (1)
  - Oesophagitis [Recovered/Resolved]
